FAERS Safety Report 7552333-8 (Version None)
Quarter: 2011Q2

REPORT INFORMATION
  Report Type: 
  Country: None (occurrence: None)
  Receive Date: 20110616
  Receipt Date: 20051115
  Transmission Date: 20111010
  Serious: Yes (Death, Other)
  Sender: FDA-Public Use
  Company Number: PHNU2005DE02585

PATIENT
  Sex: Male
  Weight: 92 kg

DRUGS (1)
  1. FLUVASTATIN SODIUM [Suspect]
     Indication: HYPERCHOLESTEROLAEMIA

REACTIONS (6)
  - BLOOD CHOLESTEROL INCREASED [None]
  - CONDITION AGGRAVATED [None]
  - BLOOD URIC ACID INCREASED [None]
  - DEATH [None]
  - LOW DENSITY LIPOPROTEIN INCREASED [None]
  - GLYCOSYLATED HAEMOGLOBIN INCREASED [None]
